FAERS Safety Report 10240791 (Version 1)
Quarter: 2014Q2

REPORT INFORMATION
  Report Type: Spontaneous
  Country: US (occurrence: US)
  Receive Date: 20140617
  Receipt Date: 20140617
  Transmission Date: 20141212
  Serious: No
  Sender: FDA-Public Use
  Company Number: US-PFIZER INC-2014164478

PATIENT
  Age: 66 Year
  Sex: Female
  Weight: 93.42 kg

DRUGS (4)
  1. LYRICA [Suspect]
     Indication: DIABETIC NEUROPATHY
     Dosage: UNK
     Dates: start: 2014, end: 20140402
  2. ISOSORBIDE [Concomitant]
     Indication: HYPERTENSION
     Dosage: 30 MG, DAILY
  3. METOPROLOL [Concomitant]
     Indication: HYPERTENSION
     Dosage: 25 MG, 2X/DAY
  4. ALBUTEROL [Concomitant]
     Indication: CHRONIC OBSTRUCTIVE PULMONARY DISEASE
     Dosage: UNK, 4X/DAY

REACTIONS (3)
  - Pain [Unknown]
  - Crying [Unknown]
  - Pain in extremity [Unknown]
